FAERS Safety Report 6169232-9 (Version None)
Quarter: 2009Q2

REPORT INFORMATION
  Report Type: 
  Country: None (occurrence: None)
  Receive Date: 20090424
  Receipt Date: 20090421
  Transmission Date: 20091009
  Serious: Yes (Hospitalization)
  Sender: FDA-Public Use
  Company Number: 192315USA

PATIENT
  Age: 28 Year
  Sex: Female

DRUGS (1)
  1. ENPRESSE-21 [Suspect]
     Indication: CONTRACEPTION
     Dosage: (4 IN 1 D), ORAL
     Route: 048

REACTIONS (5)
  - DYSPNOEA [None]
  - DYSURIA [None]
  - PLEURAL EFFUSION [None]
  - TOXIC EPIDERMAL NECROLYSIS [None]
  - WHITE BLOOD CELL COUNT DECREASED [None]
